FAERS Safety Report 5008138-5 (Version None)
Quarter: 2006Q2

REPORT INFORMATION
  Report Type: 
  Country: None (occurrence: None)
  Receive Date: 20060404
  Receipt Date: 20050816
  Transmission Date: 20061013
  Serious: Yes (Other)
  Sender: FDA-Public Use
  Company Number: 2005116688

PATIENT
  Age: 10 Year
  Sex: Male
  Weight: 53.0709 kg

DRUGS (5)
  1. GEODON [Suspect]
     Indication: AGGRESSION
     Dosage: (60 MG)
     Dates: start: 20050812, end: 20050812
  2. GEODON [Suspect]
     Indication: PSYCHOTIC DISORDER
     Dosage: (60 MG)
     Dates: start: 20050812, end: 20050812
  3. PROZAC [Suspect]
     Indication: ILL-DEFINED DISORDER
  4. STRATTERA [Concomitant]
  5. CLONIDINE [Concomitant]

REACTIONS (2)
  - DRUG INTERACTION [None]
  - LOSS OF CONSCIOUSNESS [None]
